FAERS Safety Report 12921020 (Version 1)
Quarter: 2016Q4

REPORT INFORMATION
  Report Type: Spontaneous
  Country: US (occurrence: US)
  Receive Date: 20161108
  Receipt Date: 20161108
  Transmission Date: 20170207
  Serious: Yes (Disabling, Other)
  Sender: FDA-Public Use
  Company Number: None

PATIENT
  Age: 71 Year
  Sex: Female
  Weight: 79.38 kg

DRUGS (19)
  1. CYMBALTA [Concomitant]
     Active Substance: DULOXETINE HYDROCHLORIDE
  2. PLAVIX [Concomitant]
     Active Substance: CLOPIDOGREL BISULFATE
  3. FOLIC ACID. [Concomitant]
     Active Substance: FOLIC ACID
  4. LEXISCAN [Suspect]
     Active Substance: REGADENOSON
     Indication: CARDIAC DISORDER
     Route: 042
     Dates: start: 20160921, end: 20160921
  5. CLARITIN [Concomitant]
     Active Substance: LORATADINE
  6. MIRALAX [Concomitant]
     Active Substance: POLYETHYLENE GLYCOL 3350
  7. LIPITOR [Concomitant]
     Active Substance: ATORVASTATIN CALCIUM
  8. CALCIUM [Concomitant]
     Active Substance: CALCIUM
  9. SYNTHROID [Concomitant]
     Active Substance: LEVOTHYROXINE SODIUM
  10. BYSTOLIC [Concomitant]
     Active Substance: NEBIVOLOL HYDROCHLORIDE
  11. NEXIUM [Concomitant]
     Active Substance: ESOMEPRAZOLE MAGNESIUM
  12. GABAPENTIN. [Concomitant]
     Active Substance: GABAPENTIN
  13. VITAMIN C [Concomitant]
     Active Substance: ASCORBIC ACID
  14. VITAMIN D [Concomitant]
     Active Substance: CHOLECALCIFEROL
  15. LEXISCAN [Suspect]
     Active Substance: REGADENOSON
     Indication: DIAGNOSTIC PROCEDURE
     Route: 042
     Dates: start: 20160921, end: 20160921
  16. METHOTREXATE. [Concomitant]
     Active Substance: METHOTREXATE
  17. MAGNESIUM [Concomitant]
     Active Substance: MAGNESIUM
  18. MULTIVITAMIN [Concomitant]
     Active Substance: VITAMINS
  19. OCC [Concomitant]

REACTIONS (5)
  - Chest discomfort [None]
  - Cerebrovascular accident [None]
  - Nausea [None]
  - Muscle spasms [None]
  - Presyncope [None]

NARRATIVE: CASE EVENT DATE: 20160921
